FAERS Safety Report 6444506-2 (Version None)
Quarter: 2009Q4

REPORT INFORMATION
  Report Type: 
  Country: None (occurrence: None)
  Receive Date: 20091118
  Receipt Date: 20091110
  Transmission Date: 20100525
  Serious: Yes (Other)
  Sender: FDA-Public Use
  Company Number: US-PFIZER INC-2009296502

PATIENT
  Sex: Male
  Weight: 63.956 kg

DRUGS (12)
  1. VIRACEPT [Suspect]
     Indication: HIV INFECTION
     Dosage: 250 MG, 1X/DAY
     Route: 048
  2. ZIDOVUDINE [Concomitant]
     Dosage: UNK
  3. METOPROLOL TARTRATE [Concomitant]
     Dosage: UNK
  4. SIMVASTATIN [Concomitant]
     Dosage: UNK
  5. FUROSEMIDE [Concomitant]
     Dosage: UNK
  6. ALBUTEROL [Concomitant]
     Dosage: UNK
  7. COUMARIN [Concomitant]
     Dosage: UNK
  8. ACETYLSALICYLIC ACID [Concomitant]
     Dosage: UNK
  9. COMPAZINE [Concomitant]
     Dosage: UNK
  10. VALSARTAN [Concomitant]
     Dosage: UNK
  11. SIMVASTATIN [Concomitant]
     Dosage: UNK
  12. DARVOCET [Concomitant]
     Dosage: UNK

REACTIONS (9)
  - BLOOD IRON [None]
  - CARDIAC OPERATION [None]
  - COUGH [None]
  - FOREIGN BODY [None]
  - HAEMOGLOBIN DECREASED [None]
  - HYPERTENSION [None]
  - PLATELET COUNT DECREASED [None]
  - SURGERY [None]
  - VIRAL LOAD INCREASED [None]
